FAERS Safety Report 4761334-4 (Version None)
Quarter: 2005Q3

REPORT INFORMATION
  Report Type: 
  Country: None (occurrence: None)
  Receive Date: 20050901
  Receipt Date: 20050210
  Transmission Date: 20060218
  Serious: Yes (Hospitalization)
  Sender: FDA-Public Use
  Company Number: 2005FR-00249

PATIENT
  Age: 73 Year
  Sex: Female

DRUGS (13)
  1. ASPIRIN [Suspect]
     Indication: MYOCARDIAL INFARCTION
     Dosage: 75 MG ORAL
     Route: 048
     Dates: start: 19990101, end: 20041026
  2. ASPIRIN [Suspect]
     Indication: PROPHYLAXIS
     Dosage: 75 MG ORAL
     Route: 048
     Dates: start: 19990101, end: 20041026
  3. PREDNISOLONE [Suspect]
     Indication: CHRONIC OBSTRUCTIVE PULMONARY DISEASE
  4. IMIPRAMINE [Concomitant]
  5. FUROSEMIDE [Concomitant]
  6. SIMVASTATIN [Concomitant]
  7. LISINOPRIL [Concomitant]
  8. ATENOLOL [Concomitant]
  9. CARBIMAZOLE [Concomitant]
  10. DIAZEPAM [Concomitant]
  11. BECLOMETHASONE DIPROPIONATE [Concomitant]
  12. ALBUTEROL SULFATE HFA [Concomitant]
  13. RANITIDINE [Concomitant]

REACTIONS (1)
  - GASTRIC ULCER HAEMORRHAGE [None]
